FAERS Safety Report 6260313-8 (Version None)
Quarter: 2009Q3

REPORT INFORMATION
  Report Type: 
  Country: None (occurrence: None)
  Receive Date: 20090708
  Receipt Date: 20090702
  Transmission Date: 20100115
  Serious: Yes (Hospitalization)
  Sender: FDA-Public Use
  Company Number: US-GENENTECH-282251

PATIENT
  Sex: Male
  Weight: 88.5 kg

DRUGS (2)
  1. BEVACIZUMAB [Suspect]
     Indication: GLIOBLASTOMA
     Dosage: 10 MG/KG, DAYS 1+15
     Route: 042
     Dates: start: 20090419
  2. TEMOZOLOMIDE [Suspect]
     Indication: GLIOBLASTOMA
     Dosage: 75 MG/M2, QDX21
     Route: 048
     Dates: start: 20090419

REACTIONS (1)
  - INTRACRANIAL HYPOTENSION [None]
